FAERS Safety Report 18192792 (Version 1)
Quarter: 2020Q3

REPORT INFORMATION
  Report Type: Spontaneous
  Country: US (occurrence: US)
  Receive Date: 20200825
  Receipt Date: 20200825
  Transmission Date: 20201103
  Serious: No
  Sender: FDA-Public Use
  Company Number: None

PATIENT
  Age: 71 Year
  Sex: Female
  Weight: 72 kg

DRUGS (6)
  1. LOSARTAN. [Concomitant]
     Active Substance: LOSARTAN
  2. VITAMIN C [Concomitant]
     Active Substance: ASCORBIC ACID
  3. VIACTIV CALCIUM CHEW [Concomitant]
  4. IBUPROFEN 600MG TABLETS [Suspect]
     Active Substance: IBUPROFEN
     Indication: ARTHRALGIA
     Dosage: ?          QUANTITY:1 TABLET(S);?
     Route: 048
     Dates: start: 20200812, end: 20200825
  5. ATORVASTATIN [Concomitant]
     Active Substance: ATORVASTATIN
  6. CENTRUM MULTI VITAMIN [Concomitant]

REACTIONS (3)
  - Product complaint [None]
  - Product odour abnormal [None]
  - Eructation [None]

NARRATIVE: CASE EVENT DATE: 20200812
